FAERS Safety Report 17856344 (Version 1)
Quarter: 2020Q2

REPORT INFORMATION
  Report Type: Spontaneous
  Country: NL (occurrence: NL)
  Receive Date: 20200603
  Receipt Date: 20200603
  Transmission Date: 20200714
  Serious: Yes (Other)
  Sender: FDA-Public Use
  Company Number: NL-TEVA-2020-NL-1242872

PATIENT
  Age: 64 Year
  Sex: Male

DRUGS (3)
  1. CHLOROQUINE. [Suspect]
     Active Substance: CHLOROQUINE
     Dosage: 600 MILLIGRAM DAILY; THEN 300 MG TWICE DAILY FROM 24-03 TO 28-03.
     Dates: start: 20200324, end: 20200328
  2. FENTANYL. [Suspect]
     Active Substance: FENTANYL
     Indication: PRODUCT USED FOR UNKNOWN INDICATION
     Dosage: THERAPY END DATE : ASKED BUT UNKNOWN
     Route: 065
     Dates: start: 20200322
  3. CHLOROQUINE. [Suspect]
     Active Substance: CHLOROQUINE
     Indication: CORONAVIRUS INFECTION
     Dosage: 600 MG LOADING DOSE ON 3/23,  THERAPY END DATE : ASKED BUT UNKNOWN
     Route: 065
     Dates: start: 20200323

REACTIONS (1)
  - Impaired gastric emptying [Recovered/Resolved]

NARRATIVE: CASE EVENT DATE: 20200325
